FAERS Safety Report 7337853-3 (Version None)
Quarter: 2011Q1

REPORT INFORMATION
  Report Type: 
  Country: None (occurrence: None)
  Receive Date: 20110308
  Receipt Date: 20110301
  Transmission Date: 20110831
  Serious: Yes (Hospitalization, Other)
  Sender: FDA-Public Use
  Company Number: JP-ROCHE-757065

PATIENT
  Sex: Female
  Weight: 45 kg

DRUGS (8)
  1. LIVALO [Concomitant]
     Dosage: DOSAGE IS UNCERTAIN. PERORAL AGENT.
     Route: 048
     Dates: start: 20100701, end: 20100924
  2. LOXONIN [Concomitant]
     Dosage: DOSAGE IS UNCERTAIN. PERORAL AGENT. SINGLE USE.
     Route: 048
  3. RIBAVIRIN [Suspect]
     Route: 048
     Dates: start: 20100701, end: 20100817
  4. THYRADIN [Concomitant]
     Dosage: DOSAGE IS UNCERTAIN. PERORAL AGENT.
     Route: 048
     Dates: start: 20080101, end: 20100924
  5. PEGINTERFERON ALFA-2A [Suspect]
     Route: 058
     Dates: start: 20100701, end: 20100924
  6. TAKEPRON [Concomitant]
     Dosage: DOSAGE IS UNCERTAIN.
     Route: 048
     Dates: start: 20080101, end: 20100924
  7. ALLELOCK [Concomitant]
     Dosage: DOSAGE IS UNCERTAIN. PERORAL AGENT.
     Route: 048
     Dates: start: 20100701, end: 20100924
  8. MUCOSTA [Concomitant]
     Dosage: DOSAGE IS UNCERTAIN. PERORAL AGENT.
     Route: 048
     Dates: start: 20100701, end: 20100924

REACTIONS (2)
  - FRACTURE [None]
  - ANAEMIA [None]
